FAERS Safety Report 11202041 (Version 1)
Quarter: 2015Q2

REPORT INFORMATION
  Report Type: Spontaneous
  Country: IT (occurrence: IT)
  Receive Date: 20150619
  Receipt Date: 20150619
  Transmission Date: 20150821
  Serious: Yes (Hospitalization, Other)
  Sender: FDA-Public Use
  Company Number: IT-ELI_LILLY_AND_COMPANY-IT201506003452

PATIENT
  Age: 48 Year
  Sex: Female

DRUGS (8)
  1. DILZENE [Concomitant]
     Active Substance: DILTIAZEM HYDROCHLORIDE
     Dosage: 60 MG, TID
     Route: 048
  2. INSULIN GLARGINE [Suspect]
     Active Substance: INSULIN GLARGINE
     Indication: TYPE 1 DIABETES MELLITUS
     Dosage: UNK
     Route: 065
  3. CARDIOASPIRIN [Concomitant]
     Active Substance: ASPIRIN
     Dosage: 100 MG, QD
     Route: 048
  4. HUMALOG [Suspect]
     Active Substance: INSULIN LISPRO
     Indication: TYPE 1 DIABETES MELLITUS
     Dosage: UNK
     Route: 065
  5. INSULIN GLARGINE [Suspect]
     Active Substance: INSULIN GLARGINE
     Dosage: 8 IU, QD
     Route: 058
     Dates: start: 20150313
  6. METFORMIN BLUEFISH                 /00082701/ [Concomitant]
     Dosage: 500 MG, BID
     Route: 048
  7. TRIATEC                            /00885601/ [Concomitant]
     Active Substance: RAMIPRIL
     Dosage: 5 MG, QD
     Route: 048
  8. HUMALOG [Suspect]
     Active Substance: INSULIN LISPRO
     Dosage: 21 IU, QD
     Route: 058
     Dates: start: 20150313

REACTIONS (6)
  - Head injury [Unknown]
  - Gait disturbance [Recovered/Resolved]
  - Hypoglycaemia [Recovered/Resolved]
  - Hypoglycaemia [Recovered/Resolved]
  - Fall [Unknown]
  - Dysarthria [Recovered/Resolved]

NARRATIVE: CASE EVENT DATE: 20150312
